FAERS Safety Report 5531322-9 (Version None)
Quarter: 2007Q4

REPORT INFORMATION
  Report Type: 
  Country: None (occurrence: None)
  Receive Date: 20071128
  Receipt Date: 20071115
  Transmission Date: 20080405
  Serious: Yes (Death)
  Sender: FDA-Public Use
  Company Number: 2007JP005211

PATIENT
  Age: 3 Day
  Sex: Male

DRUGS (2)
  1. CEFTIZOXIME (UNSPECIFIED) (CEFTIZOXIME) INJECTION [Suspect]
     Indication: SEPSIS
     Dosage: 125 MG, BID
     Dates: start: 20050810
  2. AMOXICILLIN TRIHYDRATE/CLAUVULANATE POTASSIUM (CLAVULANATE POTASSIUM) [Concomitant]

REACTIONS (2)
  - DEATH NEONATAL [None]
  - SHOCK [None]
